FAERS Safety Report 19459509 (Version 1)
Quarter: 2021Q2

REPORT INFORMATION
  Report Type: Spontaneous
  Country: SE (occurrence: SE)
  Receive Date: 20210624
  Receipt Date: 20210624
  Transmission Date: 20210717
  Serious: Yes (Other)
  Sender: FDA-Public Use
  Company Number: SE-ALLERGAN-2123554US

PATIENT
  Sex: Male

DRUGS (10)
  1. AKINETON [Concomitant]
     Active Substance: BIPERIDEN HYDROCHLORIDE
  2. CARIPRAZINE HCL ? BP [Interacting]
     Active Substance: CARIPRAZINE HYDROCHLORIDE
     Dosage: 4.5 MG
     Dates: start: 20190815, end: 20190912
  3. CARIPRAZINE HCL ? BP [Interacting]
     Active Substance: CARIPRAZINE HYDROCHLORIDE
     Dosage: 3 MG
     Dates: start: 20190729, end: 20190815
  4. VALDOXAN [Concomitant]
     Active Substance: AGOMELATINE
  5. CARIPRAZINE HCL ? BP [Interacting]
     Active Substance: CARIPRAZINE HYDROCHLORIDE
     Dosage: 6 MG, QD
     Dates: start: 20190912, end: 20191002
  6. STILNOCT [Concomitant]
     Active Substance: ZOLPIDEM TARTRATE
  7. HALDOL DECANOATE [Interacting]
     Active Substance: HALOPERIDOL DECANOATE
     Indication: PRODUCT USED FOR UNKNOWN INDICATION
     Dosage: 1 ML, EVERY 14 DAYS
     Dates: start: 2018
  8. LAMICTAL [Concomitant]
     Active Substance: LAMOTRIGINE
  9. CARIPRAZINE HCL ? BP [Suspect]
     Active Substance: CARIPRAZINE HYDROCHLORIDE
     Indication: SCHIZOPHRENIA
     Dosage: 4.5 MG, QD
     Dates: start: 20191002
  10. PROPAVAN [Concomitant]
     Active Substance: PROPIOMAZINE

REACTIONS (4)
  - Condition aggravated [Unknown]
  - Drug dose titration not performed [Unknown]
  - Psychotic symptom [Unknown]
  - Drug interaction [Unknown]

NARRATIVE: CASE EVENT DATE: 20190729
